FAERS Safety Report 10460218 (Version 1)
Quarter: 2014Q3

REPORT INFORMATION
  Report Type: Spontaneous
  Country: CA (occurrence: CA)
  Receive Date: 20140917
  Receipt Date: 20140917
  Transmission Date: 20150326
  Serious: Yes (Hospitalization)
  Sender: FDA-Public Use
  Company Number: CA-ACTELION-A-NJ2014-105006

PATIENT
  Age: 38 Year
  Sex: Female

DRUGS (5)
  1. CARIPUL [Suspect]
     Active Substance: EPOPROSTENOL
     Indication: PULMONARY ARTERIAL HYPERTENSION
     Dosage: 90000 NG/ML, CONT INFUS
     Route: 042
     Dates: start: 20140311
  2. SYNTHROID [Concomitant]
     Active Substance: LEVOTHYROXINE SODIUM
  3. OXYGEN. [Concomitant]
     Active Substance: OXYGEN
  4. VOLIBRIS [Concomitant]
     Active Substance: AMBRISENTAN
  5. REVATIO [Concomitant]
     Active Substance: SILDENAFIL CITRATE

REACTIONS (1)
  - Respiratory therapy [Not Recovered/Not Resolved]

NARRATIVE: CASE EVENT DATE: 20140822
